FAERS Safety Report 9773007 (Version 1)
Quarter: 2013Q4

REPORT INFORMATION
  Report Type: Spontaneous
  Country: GB (occurrence: None)
  Receive Date: 20131217
  Receipt Date: 20131217
  Transmission Date: 20140711
  Serious: Yes (Life-Threatening, Hospitalization)
  Sender: FDA-Public Use
  Company Number: GB-DEXPHARM-20131146

PATIENT
  Age: 61 Year
  Sex: Male

DRUGS (11)
  1. OMEPRAZOLE [Suspect]
     Indication: GASTROOESOPHAGEAL REFLUX DISEASE
     Dosage: DOSE: 20 MG MILLIGRAM(S) SEP. DOSAGES/ INTERVAL: 1 IN 1 DAYS
     Route: 048
     Dates: start: 20080301, end: 20080508
  2. ADALAT LA [Concomitant]
  3. ASPIRIN [Concomitant]
  4. BEMETHASONE VALERATE [Concomitant]
  5. EZETIMIBE AND SIMVASTATIN [Concomitant]
  6. FEXOFENDADINE [Concomitant]
  7. INSULATED PORCINE [Concomitant]
  8. METFORMIN [Concomitant]
  9. NOVORAPID [Concomitant]
  10. QUININE SULPHATE [Concomitant]
  11. RAMIPRIL [Concomitant]

REACTIONS (1)
  - Renal failure acute [None]
